FAERS Safety Report 4674012-7 (Version None)
Quarter: 2005Q2

REPORT INFORMATION
  Report Type: 
  Country: None (occurrence: None)
  Receive Date: 20050525
  Receipt Date: 20050506
  Transmission Date: 20051028
  Serious: Yes (Hospitalization)
  Sender: FDA-Public Use
  Company Number: IMP_0861_2005

PATIENT
  Age: 23 Year
  Sex: Male

DRUGS (5)
  1. BUPROPION HCL [Suspect]
     Indication: DEPRESSION
     Dosage: 400 MG ONCE PO
     Route: 048
  2. BUPROPION HCL [Suspect]
     Indication: DEPRESSION
     Dosage: 150 MG QDAY PO
     Route: 048
  3. BUPROPION HCL [Suspect]
     Indication: DEPRESSION
     Dosage: 300 MG QDAY PO
     Route: 048
  4. MIDAZOLAM [Suspect]
     Dosage: 105 MG ONCE PO
     Route: 048
  5. MIDAZOLAM [Suspect]
     Dosage: 7.5 MG NIGHTLY PO
     Route: 048

REACTIONS (14)
  - AGGRESSION [None]
  - BODY TEMPERATURE INCREASED [None]
  - DEPRESSION [None]
  - INTENTIONAL MISUSE [None]
  - IRRITABILITY [None]
  - PARANOIA [None]
  - PERSECUTORY DELUSION [None]
  - PSYCHOMOTOR AGITATION [None]
  - PSYCHOTIC DISORDER [None]
  - RESPIRATORY RATE INCREASED [None]
  - RESTLESSNESS [None]
  - SOMNOLENCE [None]
  - SUICIDE ATTEMPT [None]
  - THINKING ABNORMAL [None]
